FAERS Safety Report 7562250-5 (Version None)
Quarter: 2011Q2

REPORT INFORMATION
  Report Type: 
  Country: None (occurrence: None)
  Receive Date: 20110620
  Receipt Date: 20110620
  Transmission Date: 20111010
  Serious: Yes (Other)
  Sender: FDA-Public Use
  Company Number: None

PATIENT

DRUGS (1)
  1. VARENICLINE TARTRATE [Suspect]
     Indication: DRUG DEPENDENCE

REACTIONS (4)
  - MENTAL DISORDER [None]
  - DRUG INEFFECTIVE [None]
  - NAUSEA [None]
  - INSOMNIA [None]
